FAERS Safety Report 6441034-5 (Version None)
Quarter: 2009Q4

REPORT INFORMATION
  Report Type: 
  Country: None (occurrence: None)
  Receive Date: 20091116
  Receipt Date: 20091103
  Transmission Date: 20100525
  Serious: Yes (Death)
  Sender: FDA-Public Use
  Company Number: KR-ROCHE-667185

PATIENT
  Age: 53 Year
  Sex: Male

DRUGS (1)
  1. TAMIFLU [Suspect]
     Indication: H1N1 INFLUENZA
     Dosage: DRUG NAME: OSELTAMIVIR PHOSPHATE.
     Route: 065
     Dates: start: 20091029

REACTIONS (2)
  - PNEUMONIA [None]
  - SEPTIC SHOCK [None]
